FAERS Safety Report 4872441-X (Version None)
Quarter: 2006Q1

REPORT INFORMATION
  Report Type: 
  Country: None (occurrence: None)
  Receive Date: 20060104
  Receipt Date: 20051005
  Transmission Date: 20060701
  Serious: Yes (Hospitalization, Disabling)
  Sender: FDA-Public Use
  Company Number: US-MERCK-0510USA03306

PATIENT
  Age: 66 Year
  Sex: Female
  Weight: 86 kg

DRUGS (3)
  1. VIOXX [Suspect]
     Indication: FIBROMYALGIA
     Route: 048
     Dates: start: 20000901, end: 20010201
  2. PREVACID [Concomitant]
     Route: 065
  3. PREMARIN [Concomitant]
     Route: 065

REACTIONS (2)
  - ANGINA PECTORIS [None]
  - CARDIAC FAILURE CONGESTIVE [None]
